FAERS Safety Report 18755397 (Version 6)
Quarter: 2021Q3

REPORT INFORMATION
  Report Type: Report from Study
  Country: AR (occurrence: AR)
  Receive Date: 20210119
  Receipt Date: 20210701
  Transmission Date: 20211014
  Serious: Yes (Hospitalization, Other)
  Sender: FDA-Public Use
  Company Number: NVSC2020AR243504

PATIENT
  Age: 62 Year
  Sex: Female

DRUGS (2)
  1. REVOLADE [Suspect]
     Active Substance: ELTROMBOPAG OLAMINE
     Indication: APLASTIC ANAEMIA
     Dosage: 150 MG, QD (END DATE REPORTED AS JUN)
     Route: 048
     Dates: start: 20200110
  2. DEFERASIROX. [Concomitant]
     Active Substance: DEFERASIROX
     Indication: PRODUCT USED FOR UNKNOWN INDICATION
     Dosage: 1000 MG, QD
     Route: 065

REACTIONS (16)
  - Infection [Unknown]
  - Discomfort [Unknown]
  - Product dose omission issue [Unknown]
  - Urinary tract infection [Recovering/Resolving]
  - Platelet count decreased [Unknown]
  - Nervousness [Unknown]
  - Haemorrhage urinary tract [Unknown]
  - Stress [Unknown]
  - Full blood count decreased [Unknown]
  - Haematuria [Recovered/Resolved]
  - Blood iron increased [Unknown]
  - Ill-defined disorder [Unknown]
  - Anxiety [Unknown]
  - Therapy non-responder [Unknown]
  - Blood urine present [Unknown]
  - Thrombocytopenia [Unknown]

NARRATIVE: CASE EVENT DATE: 20200818
